FAERS Safety Report 4396532-5 (Version None)
Quarter: 2004Q2

REPORT INFORMATION
  Report Type: 
  Country: None (occurrence: None)
  Receive Date: 20040621
  Receipt Date: 20031020
  Transmission Date: 20050107
  Serious: Yes (Other)
  Sender: FDA-Public Use
  Company Number: USA-2003-0010368

PATIENT
  Age: 49 Year
  Weight: 63.5 kg

DRUGS (2)
  1. OXYCONTIN [Suspect]
     Indication: PAIN
     Dosage: 20 MG, Q12H
     Dates: start: 20021118, end: 20021201
  2. NORCO [Concomitant]

REACTIONS (5)
  - DECREASED APPETITE [None]
  - DRUG ABUSER [None]
  - DRUG DEPENDENCE [None]
  - DRUG INEFFECTIVE [None]
  - WEIGHT DECREASED [None]
